FAERS Safety Report 7645900-4 (Version None)
Quarter: 2011Q3

REPORT INFORMATION
  Report Type: 
  Country: None (occurrence: None)
  Receive Date: 20110729
  Receipt Date: 20090614
  Transmission Date: 20111222
  Serious: Yes (Death, Hospitalization, Other)
  Sender: FDA-Public Use
  Company Number: US-BAYER-200923239NA

PATIENT
  Age: 61 Year
  Sex: Male
  Weight: 113 kg

DRUGS (21)
  1. TRASYLOL [Suspect]
     Indication: CORONARY ARTERY BYPASS
     Dosage: 1 ML, ONCE, INITIAL TEST DOSE
     Route: 042
     Dates: start: 20050429, end: 20050429
  2. TRASYLOL [Suspect]
     Dosage: 200 ML CARDIOPULMONARY BYPASS PRIME
     Route: 042
     Dates: start: 20050429, end: 20050429
  3. ACETYLSALICYLIC ACID SRT [Concomitant]
     Dosage: 81 MG, QD, LONG TERM USE
     Route: 048
  4. IMDUR [Concomitant]
     Dosage: 60 MG, QD, LONG TERM USE
     Route: 048
  5. RED BLOOD CELLS [Concomitant]
     Dosage: 2 U, ONCE
     Route: 042
     Dates: start: 20050429
  6. FENTANYL [Concomitant]
     Dosage: 400MG
     Route: 042
     Dates: start: 20050429, end: 20050429
  7. INSULIN [Concomitant]
     Dosage: I UNIT PER HOUR
     Route: 042
     Dates: start: 20050429, end: 20050429
  8. MANNITOL [Concomitant]
     Dosage: 25 GRAMS
     Route: 042
     Dates: start: 20050429, end: 20050429
  9. HEPARIN [Concomitant]
     Dosage: 40,000 UNITS
     Route: 042
     Dates: start: 20050429, end: 20050429
  10. TRASYLOL [Suspect]
     Dosage: 200 ML LOADING DOSE
     Route: 042
     Dates: start: 20050429, end: 20050429
  11. TRASYLOL [Suspect]
     Dosage: 50 ML/HOUR INFUSION
     Route: 042
     Dates: start: 20050429, end: 20050429
  12. LASIX [Concomitant]
     Dosage: 20MG
     Route: 042
     Dates: start: 20050429, end: 20050429
  13. VASOPRESSIN [Concomitant]
     Dosage: UNK
     Route: 042
     Dates: start: 20050429, end: 20050429
  14. NITROGLYCERIN [Concomitant]
     Dosage: UNK
     Route: 042
     Dates: start: 20050429, end: 20050429
  15. CONTRAST MEDIA [Concomitant]
     Indication: CATHETERISATION CARDIAC
     Dosage: UNK
     Dates: start: 20050429, end: 20050429
  16. TOPROL-XL [Concomitant]
     Dosage: 50 MG, QD, LONG TERM USE
     Route: 048
  17. PRILOSEC [Concomitant]
     Dosage: 20 MG, QD, LONG TERM USE
     Route: 048
  18. PROTAMINE [Concomitant]
     Dosage: 350MG
     Route: 042
     Dates: start: 20050429, end: 20050429
  19. LIPITOR [Concomitant]
     Dosage: 10 MG, QD, LONG TERM USE
     Route: 048
  20. AVANDIA [Concomitant]
     Dosage: 4 MG, BID, LONG TERM USE
     Route: 048
  21. DOPAMINE HCL [Concomitant]
     Dosage: UNK
     Route: 042
     Dates: start: 20050429, end: 20050429

REACTIONS (12)
  - EMOTIONAL DISTRESS [None]
  - PAIN [None]
  - RENAL INJURY [None]
  - MYOCARDIAL INFARCTION [None]
  - ANXIETY [None]
  - INJURY [None]
  - STRESS [None]
  - ANHEDONIA [None]
  - DEATH [None]
  - RENAL FAILURE [None]
  - UNEVALUABLE EVENT [None]
  - FEAR [None]
